FAERS Safety Report 6703621-6 (Version None)
Quarter: 2010Q2

REPORT INFORMATION
  Report Type: 
  Country: None (occurrence: None)
  Receive Date: 20100430
  Receipt Date: 20100428
  Transmission Date: 20101027
  Serious: Yes (Death)
  Sender: FDA-Public Use
  Company Number: PHHY2010US27133

PATIENT
  Sex: Male

DRUGS (2)
  1. TOBI [Suspect]
     Dosage: 1 AMPOULE TWICE A DAY
     Dates: start: 20070927
  2. TOBI [Suspect]
     Dosage: UNK
     Dates: start: 20100306

REACTIONS (1)
  - DEATH [None]
